FAERS Safety Report 16345937 (Version 2)
Quarter: 2019Q2

REPORT INFORMATION
  Report Type: Spontaneous
  Country: PT (occurrence: PT)
  Receive Date: 20190523
  Receipt Date: 20190531
  Transmission Date: 20190711
  Serious: Yes (Hospitalization, Other)
  Sender: FDA-Public Use
  Company Number: PT-GLAXOSMITHKLINE-PT2019EME088695

PATIENT

DRUGS (3)
  1. TIOTROPIUM BROMID [Concomitant]
     Active Substance: TIOTROPIUM BROMIDE
     Indication: ASTHMA
     Dosage: 5 MG, 1D
     Route: 055
     Dates: start: 20151009
  2. MEPOLIZUMAB [Suspect]
     Active Substance: MEPOLIZUMAB
     Indication: ASTHMA
     Dosage: 100 MG, Z,MONTHLY
     Route: 058
     Dates: start: 20180607, end: 20190412
  3. FLUTICASONE + FORMOTEROL [Concomitant]
     Active Substance: FLUTICASONE\FORMOTEROL
     Indication: ASTHMA
     Dosage: UNK UNK, BID
     Route: 055
     Dates: start: 20180329

REACTIONS (3)
  - Headache [Unknown]
  - Glioblastoma [Recovering/Resolving]
  - Asthenia [Unknown]

NARRATIVE: CASE EVENT DATE: 20190424
